FAERS Safety Report 7243729-2 (Version None)
Quarter: 2011Q1

REPORT INFORMATION
  Report Type: 
  Country: None (occurrence: None)
  Receive Date: 20110125
  Receipt Date: 20110119
  Transmission Date: 20110831
  Serious: Yes (Other)
  Sender: FDA-Public Use
  Company Number: BR-PFIZER INC-2010137836

PATIENT
  Age: 64 Year
  Sex: Female
  Weight: 50 kg

DRUGS (4)
  1. KETOPROFEN [Concomitant]
     Indication: SPINAL DISORDER
     Dosage: 50 MG, 2X/DAY
     Dates: end: 20110117
  2. CHAMPIX [Suspect]
     Indication: TOBACCO USER
     Dosage: 0.5 MG, 1X/DAY
     Route: 048
     Dates: start: 20101018
  3. SIMVASTATIN [Concomitant]
     Indication: BLOOD CHOLESTEROL INCREASED
     Dosage: 40 MG, 1X/DAY
     Dates: start: 20101101
  4. BENICAR [Concomitant]
     Indication: HYPERTENSION
     Dosage: 1X/DAY
     Dates: start: 20090101

REACTIONS (1)
  - BLOOD PRESSURE DECREASED [None]
